FAERS Safety Report 24379966 (Version 2)
Quarter: 2025Q3

REPORT INFORMATION
  Report Type: Spontaneous
  Country: EU (occurrence: EU)
  Receive Date: 20240930
  Receipt Date: 20250809
  Transmission Date: 20251020
  Serious: Yes (Other)
  Sender: ALEXION PHARMACEUTICALS
  Company Number: EU-GRUNENTHAL-2024-125719

PATIENT
  Sex: Female

DRUGS (1)
  1. CRESTOR [Suspect]
     Active Substance: ROSUVASTATIN CALCIUM
     Indication: Product used for unknown indication

REACTIONS (31)
  - Circulatory collapse [Unknown]
  - Myocardial infarction [Unknown]
  - Deafness [Unknown]
  - Cachexia [Unknown]
  - Pancreatitis acute [Unknown]
  - Alopecia [Unknown]
  - Depression [Unknown]
  - Swelling face [Unknown]
  - Dyspnoea [Unknown]
  - Cardiac disorder [Unknown]
  - Dizziness [Unknown]
  - Vomiting [Unknown]
  - Diarrhoea [Unknown]
  - Abdominal pain upper [Unknown]
  - Conjunctivitis [Unknown]
  - Gastritis bacterial [Unknown]
  - Drug ineffective [Unknown]
  - Vascular stenosis [Unknown]
  - Blood cholesterol increased [Unknown]
  - Adverse event [Unknown]
  - Muscle injury [Unknown]
  - Bone pain [Unknown]
  - Arthralgia [Unknown]
  - Spinal disorder [Unknown]
  - Hypotension [Unknown]
  - Aphasia [Unknown]
  - Mental disorder [Unknown]
  - Adverse event [Unknown]
  - Mood altered [Unknown]
  - Headache [Unknown]
  - Swelling [Unknown]
